FAERS Safety Report 6248779-0 (Version None)
Quarter: 2009Q2

REPORT INFORMATION
  Report Type: 
  Country: None (occurrence: None)
  Receive Date: 20090629
  Receipt Date: 20090625
  Transmission Date: 20091009
  Serious: Yes (Death)
  Sender: FDA-Public Use
  Company Number: KR-ASTRAZENECA-2009SE03464

PATIENT
  Age: 67 Year
  Sex: Female

DRUGS (9)
  1. ARIMIDEX [Suspect]
     Indication: BREAST CANCER
     Route: 048
     Dates: start: 20080811
  2. FLUOROURACIL [Concomitant]
     Indication: ADJUVANT THERAPY
  3. CYCLOPHOSPHAMIDE [Concomitant]
     Indication: ADJUVANT THERAPY
  4. EPIRUBICIN [Concomitant]
     Indication: ADJUVANT THERAPY
  5. PACLITAXEL [Concomitant]
     Indication: ADJUVANT THERAPY
     Dates: start: 20080117, end: 20080509
  6. PACLITAXEL [Concomitant]
     Dates: start: 20090417, end: 20090515
  7. CARBOPLATIN [Concomitant]
     Indication: ADJUVANT THERAPY
     Dates: start: 20080117, end: 20090509
  8. CARBOPLATIN [Concomitant]
     Dates: start: 20090417, end: 20090515
  9. BELOTECAN [Concomitant]
     Indication: ADJUVANT THERAPY
     Dates: start: 20081114, end: 20090331

REACTIONS (2)
  - DISEASE PROGRESSION [None]
  - OVARIAN CANCER [None]
